FAERS Safety Report 9095086 (Version 1)
Quarter: 2013Q1

REPORT INFORMATION
  Report Type: Spontaneous
  Country: US (occurrence: None)
  Receive Date: 20130123
  Receipt Date: 20130123
  Transmission Date: 20140127
  Serious: Yes (Death)
  Sender: FDA-Public Use
  Company Number: 2013-00477

PATIENT
  Age: 33 Year
  Sex: Female

DRUGS (2)
  1. CLONAZEPAM [Suspect]
     Indication: PRODUCT USED FOR UNKNOWN INDICATION
     Route: 048
     Dates: end: 2011
  2. DIAZEPAM (WATSON LABORATORIES) (DIAZEPAM) UNK, UNKUNK [Suspect]
     Indication: PRODUCT USED FOR UNKNOWN INDICATION
     Route: 048
     Dates: end: 2011

REACTIONS (11)
  - Disorientation [None]
  - Ventricular tachycardia [None]
  - Convulsion [None]
  - Cardiac arrest [None]
  - Confusional state [None]
  - Hallucination [None]
  - Acute respiratory distress syndrome [None]
  - Septic shock [None]
  - Escherichia test positive [None]
  - Staphylococcus test positive [None]
  - Haemophilus test positive [None]
